FAERS Safety Report 12582077 (Version 1)
Quarter: 2016Q3

REPORT INFORMATION
  Report Type: Spontaneous
  Country: US (occurrence: US)
  Receive Date: 20160722
  Receipt Date: 20160722
  Transmission Date: 20161109
  Serious: Yes (Other)
  Sender: FDA-Public Use
  Company Number: US-TEVA-654378USA

PATIENT
  Sex: Female

DRUGS (1)
  1. PROCHLORPERAZINE. [Suspect]
     Active Substance: PROCHLORPERAZINE
     Indication: NAUSEA
     Dosage: BID PRN
     Dates: start: 20160129

REACTIONS (7)
  - Muscle twitching [Recovered/Resolved]
  - Swelling [Recovered/Resolved]
  - Muscle contractions involuntary [Recovered/Resolved]
  - Swollen tongue [Recovered/Resolved]
  - Jaw disorder [Recovered/Resolved]
  - Bruxism [Recovered/Resolved]
  - Muscle tightness [Recovered/Resolved]
